FAERS Safety Report 23061167 (Version 6)
Quarter: 2024Q3

REPORT INFORMATION
  Report Type: Spontaneous
  Country: AR (occurrence: AR)
  Receive Date: 20231013
  Receipt Date: 20240806
  Transmission Date: 20241017
  Serious: Yes (Hospitalization, Other)
  Sender: GLAXOSMITHKLINE
  Company Number: AR-GLAXOSMITHKLINE-AR2023AMR138397

PATIENT

DRUGS (1)
  1. ZEJULA [Suspect]
     Active Substance: NIRAPARIB
     Indication: Product used for unknown indication
     Dosage: 1 DF, QD

REACTIONS (10)
  - Poisoning [Unknown]
  - Diverticulitis [Unknown]
  - Hospitalisation [Unknown]
  - Recurrent cancer [Unknown]
  - Surgery [Unknown]
  - Toxicity to various agents [Unknown]
  - Malaise [Unknown]
  - Constipation [Unknown]
  - Disease complication [Unknown]
  - Pain [Unknown]
